FAERS Safety Report 12811217 (Version 2)
Quarter: 2016Q4

REPORT INFORMATION
  Report Type: Spontaneous
  Country: US (occurrence: US)
  Receive Date: 20161005
  Receipt Date: 20161014
  Transmission Date: 20170207
  Serious: No
  Sender: FDA-Public Use
  Company Number: US-HORIZON-PEN-0472-2016

PATIENT
  Sex: Female

DRUGS (1)
  1. PENNSAID [Suspect]
     Active Substance: DICLOFENAC SODIUM
     Indication: OSTEOARTHRITIS
     Dosage: 2 PUMPS AT NIGHT
     Dates: start: 201607, end: 20160919

REACTIONS (6)
  - Application site paraesthesia [Recovered/Resolved]
  - Application site pain [Recovered/Resolved]
  - Inappropriate schedule of drug administration [Recovered/Resolved]
  - Application site rash [Recovered/Resolved]
  - Intentional product misuse [Unknown]
  - Application site infection [Recovered/Resolved]

NARRATIVE: CASE EVENT DATE: 20160919
